FAERS Safety Report 8956630 (Version 1)
Quarter: 2012Q4

REPORT INFORMATION
  Report Type: 
  Country: FR (occurrence: FR)
  Receive Date: 20121210
  Receipt Date: 20121210
  Transmission Date: 20130627
  Serious: Yes (Life-Threatening, Hospitalization)
  Sender: FDA-Public Use
  Company Number: FR-ASTRAZENECA-2012SE91639

PATIENT
  Age: 70 Year
  Sex: Male

DRUGS (12)
  1. INEXIUM [Suspect]
     Route: 048
     Dates: start: 20120521, end: 20120620
  2. TAZOCILLINE [Suspect]
     Route: 042
     Dates: start: 20120605, end: 20120615
  3. VANCOCIN [Suspect]
     Route: 042
     Dates: start: 20120605, end: 20120615
  4. CLAMOXYL [Suspect]
     Route: 042
     Dates: start: 20120612
  5. ROCEPHINE [Suspect]
     Route: 042
     Dates: start: 20120528, end: 20120607
  6. DALACINE [Suspect]
     Indication: LUNG DISORDER
     Route: 042
     Dates: start: 20120612, end: 20120625
  7. PREVISCAN [Suspect]
     Indication: CARDIOVASCULAR EVENT PROPHYLAXIS
     Route: 048
  8. SERETIDE [Suspect]
     Indication: CHRONIC OBSTRUCTIVE PULMONARY DISEASE
     Route: 055
  9. LASILIX [Suspect]
     Indication: HYPERTENSION
     Route: 048
  10. COAPROVEL [Suspect]
     Indication: HYPERTENSION
     Route: 048
  11. FLAGYL [Suspect]
     Route: 042
     Dates: start: 20120605, end: 20120615
  12. DIFFU K [Concomitant]
     Route: 048
     Dates: start: 20120521, end: 20120612

REACTIONS (2)
  - Cardio-respiratory distress [Unknown]
  - Agranulocytosis [Recovered/Resolved]
